FAERS Safety Report 16280532 (Version 1)
Quarter: 2019Q2

REPORT INFORMATION
  Report Type: Spontaneous
  Country: US (occurrence: US)
  Receive Date: 20190402
  Receipt Date: 20190402
  Transmission Date: 20190711
  Serious: No
  Sender: FDA-Public Use
  Company Number: None

PATIENT

DRUGS (2)
  1. AMLODIPINE [Suspect]
     Active Substance: AMLODIPINE BESYLATE
  2. AMIODARONE INJECTION [Suspect]
     Active Substance: AMIODARONE

REACTIONS (2)
  - Wrong product administered [None]
  - Drug dispensed to wrong patient [None]
